FAERS Safety Report 5359738-4 (Version None)
Quarter: 2007Q2

REPORT INFORMATION
  Report Type: 
  Country: None (occurrence: None)
  Receive Date: 20070530
  Receipt Date: 20070317
  Transmission Date: 20071010
  Serious: No
  Sender: FDA-Public Use
  Company Number: 2007PV031903

PATIENT
  Age: 53 Year
  Sex: Male

DRUGS (5)
  1. BYETTA [Suspect]
     Indication: DIABETES MELLITUS NON-INSULIN-DEPENDENT
     Dosage: 5 + 10MCG; SC
     Route: 058
     Dates: start: 20070301, end: 20070301
  2. BYETTA [Suspect]
     Indication: DIABETES MELLITUS NON-INSULIN-DEPENDENT
     Dosage: 5 + 10MCG; SC
     Route: 058
     Dates: end: 20070301
  3. BYETTA [Suspect]
     Indication: DIABETES MELLITUS NON-INSULIN-DEPENDENT
     Dosage: 5 + 10MCG; SC
     Route: 058
     Dates: start: 20070301, end: 20070312
  4. COUMADIN [Concomitant]
  5. LISINOPRIL [Concomitant]

REACTIONS (3)
  - NAUSEA [None]
  - RASH VESICULAR [None]
  - WEIGHT DECREASED [None]
